FAERS Safety Report 7384748-5 (Version None)
Quarter: 2011Q1

REPORT INFORMATION
  Report Type: 
  Country: None (occurrence: None)
  Receive Date: 20110330
  Receipt Date: 20110324
  Transmission Date: 20110831
  Serious: Yes (Death, Other)
  Sender: FDA-Public Use
  Company Number: PHHY2011US25031

PATIENT
  Age: 95 Year
  Sex: Male

DRUGS (8)
  1. PROSCAR [Concomitant]
  2. GLEEVEC [Suspect]
     Dosage: 300 MG DAILY
     Route: 048
     Dates: start: 20110101
  3. CLONAZEPAM [Concomitant]
  4. GLEEVEC [Suspect]
     Dosage: 400 MG DAILY
     Route: 048
  5. TORSEMIDE [Concomitant]
  6. CAPTOPRIL [Concomitant]
  7. ASPIRIN [Concomitant]
     Dosage: 81 MG, UNK
  8. LEVOTHYROXINE SODIUM [Concomitant]

REACTIONS (6)
  - NEOPLASM MALIGNANT [None]
  - SKIN DISCOLOURATION [None]
  - CHRONIC MYELOID LEUKAEMIA [None]
  - BLISTER [None]
  - SECRETION DISCHARGE [None]
  - OEDEMA PERIPHERAL [None]
